FAERS Safety Report 23579521 (Version 3)
Quarter: 2024Q4

REPORT INFORMATION
  Report Type: Spontaneous
  Country: CA (occurrence: CA)
  Receive Date: 20240229
  Receipt Date: 20241008
  Transmission Date: 20250115
  Serious: Yes (Hospitalization, Other)
  Sender: ASCEND
  Company Number: CA-Ascend Therapeutics US, LLC-2149900

PATIENT
  Age: 75 Year
  Sex: Female
  Weight: 70 kg

DRUGS (45)
  1. ESTROGEL [Suspect]
     Active Substance: ESTRADIOL
     Indication: Menopausal symptoms
  2. ESTROGEL [Suspect]
     Active Substance: ESTRADIOL
  3. ESTROGEL [Suspect]
     Active Substance: ESTRADIOL
  4. IPRATROPIUM BROMIDE [Suspect]
     Active Substance: IPRATROPIUM BROMIDE
  5. VITAMINS NOS [Suspect]
     Active Substance: VITAMINS
  6. VITAMINS NOS [Suspect]
     Active Substance: VITAMINS
  7. GABAPENTIN [Suspect]
     Active Substance: GABAPENTIN
  8. GABAPENTIN [Suspect]
     Active Substance: GABAPENTIN
  9. ATORVASTATIN CALCIUM [Suspect]
     Active Substance: ATORVASTATIN CALCIUM
  10. AMOXICILLIN TRIHYDRATE [Suspect]
     Active Substance: AMOXICILLIN
  11. CLONAZEPAM [Suspect]
     Active Substance: CLONAZEPAM
  12. CALCIUM CARBONATE [Suspect]
     Active Substance: CALCIUM CARBONATE
  13. ACETAMINOPHEN [Suspect]
     Active Substance: ACETAMINOPHEN
  14. ACETAMINOPHEN\PSEUDOEPHEDRINE HYDROCHLORIDE [Concomitant]
     Active Substance: ACETAMINOPHEN\PSEUDOEPHEDRINE HYDROCHLORIDE
  15. VITAMIN B6 [Concomitant]
     Active Substance: PYRIDOXINE HYDROCHLORIDE
  16. VITAMIN B6 [Concomitant]
     Active Substance: PYRIDOXINE HYDROCHLORIDE
  17. VITAMIN B6 [Concomitant]
     Active Substance: PYRIDOXINE HYDROCHLORIDE
  18. VITAMIN B6 [Concomitant]
     Active Substance: PYRIDOXINE HYDROCHLORIDE
  19. CHOLECALCIFEROL [Concomitant]
     Active Substance: CHOLECALCIFEROL
  20. ATORVASTATIN CALCIUM [Concomitant]
     Active Substance: ATORVASTATIN CALCIUM
  21. ACETAMINOPHEN [Concomitant]
     Active Substance: ACETAMINOPHEN
  22. ZOPICLONE [Suspect]
     Active Substance: ZOPICLONE
  23. ZOPICLONE [Suspect]
     Active Substance: ZOPICLONE
  24. ZOPICLONE [Suspect]
     Active Substance: ZOPICLONE
  25. ZOPICLONE [Suspect]
     Active Substance: ZOPICLONE
  26. ZOPICLONE [Suspect]
     Active Substance: ZOPICLONE
  27. VITAMIN D3 [Suspect]
     Active Substance: CHOLECALCIFEROL
  28. TELMISARTAN [Suspect]
     Active Substance: TELMISARTAN
  29. TELMISARTAN [Suspect]
     Active Substance: TELMISARTAN
  30. TELMISARTAN [Suspect]
     Active Substance: TELMISARTAN
  31. TELMISARTAN [Suspect]
     Active Substance: TELMISARTAN
  32. TELMISARTAN [Suspect]
     Active Substance: TELMISARTAN
  33. PYRIDOXINE HYDROCHLORIDE [Suspect]
     Active Substance: PYRIDOXINE HYDROCHLORIDE
  34. PSEUDOEPHEDRINE HYDROCHLORIDE [Suspect]
     Active Substance: PSEUDOEPHEDRINE HYDROCHLORIDE
  35. PREGABALIN [Suspect]
     Active Substance: PREGABALIN
  36. ESTRADIOL [Suspect]
     Active Substance: ESTRADIOL
  37. NAPROXEN [Suspect]
     Active Substance: NAPROXEN
  38. LATANOPROST [Suspect]
     Active Substance: LATANOPROST
  39. IPRATROPIUM BROMIDE [Suspect]
     Active Substance: IPRATROPIUM BROMIDE
  40. IBUPROFEN [Suspect]
     Active Substance: IBUPROFEN
  41. DICLOFENAC SODIUM [Suspect]
     Active Substance: DICLOFENAC SODIUM
  42. BRINZOLAMIDE\TIMOLOL MALEATE [Suspect]
     Active Substance: BRINZOLAMIDE\TIMOLOL MALEATE
  43. BRINZOLAMIDE\TIMOLOL MALEATE [Suspect]
     Active Substance: BRINZOLAMIDE\TIMOLOL MALEATE
  44. BRINZOLAMIDE\TIMOLOL MALEATE [Suspect]
     Active Substance: BRINZOLAMIDE\TIMOLOL MALEATE
  45. AZOPT [Suspect]
     Active Substance: BRINZOLAMIDE

REACTIONS (6)
  - Toxic epidermal necrolysis [Recovered/Resolved]
  - Rash papular [Recovered/Resolved]
  - Off label use [Recovered/Resolved]
  - Rash erythematous [Recovered/Resolved]
  - Nikolsky^s sign positive [Recovered/Resolved]
  - Haemoglobin decreased [Recovered/Resolved]
